FAERS Safety Report 14762988 (Version 2)
Quarter: 2018Q2

REPORT INFORMATION
  Report Type: Spontaneous
  Country: US (occurrence: US)
  Receive Date: 20180416
  Receipt Date: 20180520
  Transmission Date: 20180711
  Serious: No
  Sender: FDA-Public Use
  Company Number: US-JNJFOC-20180404584

PATIENT
  Age: 91 Year
  Sex: Male

DRUGS (1)
  1. ZYTIGA [Suspect]
     Active Substance: ABIRATERONE ACETATE
     Indication: PRODUCT USED FOR UNKNOWN INDICATION
     Dosage: 250 MG X 4 TABLETS
     Route: 048

REACTIONS (2)
  - Road traffic accident [Unknown]
  - Malaise [Unknown]

NARRATIVE: CASE EVENT DATE: 20180317
